FAERS Safety Report 8121686-4 (Version None)
Quarter: 2012Q1

REPORT INFORMATION
  Report Type: 
  Country: None (occurrence: None)
  Receive Date: 20120207
  Receipt Date: 20120207
  Transmission Date: 20120608
  Serious: Yes (Other)
  Sender: FDA-Public Use
  Company Number: None

PATIENT
  Sex: Female
  Weight: 62.5964 kg

DRUGS (20)
  1. FLONASE [Concomitant]
  2. ALBUTEROL SULFATE AUTOHALER [Concomitant]
  3. LORATADINE [Concomitant]
  4. GLUCOSAMINE CHONDR [Concomitant]
  5. SEROQUEL [Concomitant]
  6. HYDROCODONE BITARTRATE AND ACETAMINOPHEN [Concomitant]
  7. IBUPROFEN [Concomitant]
  8. CHONDROITIN SULFATE [Concomitant]
  9. RANITIDINE HCL [Concomitant]
  10. VITAMIN D [Concomitant]
  11. QVAR 40 MCG/ACT AEROSOL [Concomitant]
  12. CALCIUM [Concomitant]
  13. FISH OIL [Concomitant]
  14. AMLODIPINE [Suspect]
     Indication: HYPERTENSION
     Dosage: 10 MG 1 TAB DAILY QD ORAL
     Route: 048
     Dates: start: 20120123, end: 20120125
  15. MIRTAZAPINE [Concomitant]
  16. ALENDRONATE SODIUM [Concomitant]
  17. PRAVASTATIN SODIUM [Concomitant]
  18. GABAPENTIN [Concomitant]
  19. HYDROCHLOROTHIAZIDE [Concomitant]
  20. ASPIRIN [Concomitant]

REACTIONS (2)
  - HEADACHE [None]
  - PRODUCT SUBSTITUTION ISSUE [None]
